FAERS Safety Report 17813805 (Version 1)
Quarter: 2020Q2

REPORT INFORMATION
  Report Type: Other
  Country: IN (occurrence: IN)
  Receive Date: 20200521
  Receipt Date: 20200521
  Transmission Date: 20200714
  Serious: Yes (Life-Threatening, Hospitalization)
  Sender: FDA-Public Use
  Company Number: IN-NOSTRUM LABORATORIES, INC.-2084073

PATIENT
  Age: 13 Year
  Sex: Female

DRUGS (1)
  1. DAPSONE. [Suspect]
     Active Substance: DAPSONE
     Indication: IMMUNE THROMBOCYTOPENIA
     Route: 048

REACTIONS (4)
  - Pneumonia bacterial [Recovered/Resolved]
  - Agranulocytosis [Recovered/Resolved]
  - Shock [Recovered/Resolved]
  - Haemolytic anaemia [Recovered/Resolved]
